FAERS Safety Report 12768619 (Version 1)
Quarter: 2016Q3

REPORT INFORMATION
  Report Type: Not Available
  Country: IE (occurrence: IE)
  Receive Date: 20160921
  Receipt Date: 20160921
  Transmission Date: 20161109
  Serious: Yes (Other)
  Sender: FDA-Public Use
  Company Number: IE-ANIPHARMA-2016-IE-000003

PATIENT
  Age: 62 Year
  Sex: Male

DRUGS (6)
  1. VALACICLOVIR [Concomitant]
     Active Substance: VALACYCLOVIR HYDROCHLORIDE
     Dosage: 500 MG ONCE DAILY
     Route: 065
  2. LEDIPASVIR/SOFOSBUVIR [Suspect]
     Active Substance: LEDIPASVIR\SOFOSBUVIR
     Dosage: UNKNOWN
     Route: 065
     Dates: start: 201502
  3. RIBAVIRIN. [Suspect]
     Active Substance: RIBAVIRIN
     Dosage: 1000 MG DAILY
     Route: 065
     Dates: start: 201502
  4. LANSOPRAZOLE (NON-SPECIFIC) [Suspect]
     Active Substance: LANSOPRAZOLE
     Dosage: 15 MG AS REQUIRED
     Route: 065
     Dates: start: 201502
  5. PRAVASTATIN. [Concomitant]
     Active Substance: PRAVASTATIN
     Dosage: 40 MG ONCE DAILY
     Route: 065
  6. PROPRANOLOL HYDROCHLORIDE (NON-SPECIFIC) [Concomitant]
     Active Substance: PROPRANOLOL HYDROCHLORIDE
     Dosage: 20 MG TWICE DAILY
     Route: 065

REACTIONS (3)
  - Drug interaction [Unknown]
  - Anaemia [Unknown]
  - Virologic failure [Unknown]
